FAERS Safety Report 10577449 (Version 2)
Quarter: 2014Q4

REPORT INFORMATION
  Report Type: Report from Study
  Country: CA (occurrence: CA)
  Receive Date: 20141111
  Receipt Date: 20141116
  Transmission Date: 20150529
  Serious: Yes (Hospitalization, Disabling)
  Sender: FDA-Public Use
  Company Number: CA-ABBVIE-14K-028-1304947-00

PATIENT
  Age: 17 Year
  Sex: Female
  Weight: 59.2 kg

DRUGS (6)
  1. FLUOXETINE [Concomitant]
     Active Substance: FLUOXETINE\FLUOXETINE HYDROCHLORIDE
     Indication: PRODUCT USED FOR UNKNOWN INDICATION
     Dosage: SUNDAY, TUESDAY, THURSDAY AND SATURDAY
     Route: 048
     Dates: start: 20130705
  2. FLUOXETINE [Concomitant]
     Active Substance: FLUOXETINE\FLUOXETINE HYDROCHLORIDE
     Dosage: MONDAY, WEDNESDAY AND FRIDAY
     Route: 048
  3. HUMIRA [Suspect]
     Active Substance: ADALIMUMAB
     Indication: JUVENILE IDIOPATHIC ARTHRITIS
     Route: 058
     Dates: start: 20131204
  4. METHOTREXATE [Concomitant]
     Active Substance: METHOTREXATE
     Indication: JUVENILE IDIOPATHIC ARTHRITIS
     Route: 048
     Dates: start: 20120801
  5. CELEXA [Suspect]
     Active Substance: CITALOPRAM HYDROBROMIDE
     Indication: PRODUCT USED FOR UNKNOWN INDICATION
     Route: 065
  6. FOLIC ACID. [Concomitant]
     Active Substance: FOLIC ACID
     Indication: JUVENILE IDIOPATHIC ARTHRITIS
     Route: 048
     Dates: start: 20120801

REACTIONS (13)
  - Psychosexual disorder [Recovering/Resolving]
  - Borderline personality disorder [Unknown]
  - Parent-child problem [Recovering/Resolving]
  - Mental disorder [Recovering/Resolving]
  - Overdose [Unknown]
  - Stress [Recovering/Resolving]
  - Device issue [Unknown]
  - Sleep disorder [Unknown]
  - Anxiety [Unknown]
  - Analgesic drug level decreased [Unknown]
  - Blood lactate dehydrogenase increased [Unknown]
  - Major depression [Recovering/Resolving]
  - Affective disorder [Recovering/Resolving]

NARRATIVE: CASE EVENT DATE: 2014
